FAERS Safety Report 7744503-0 (Version None)
Quarter: 2011Q3

REPORT INFORMATION
  Report Type: 
  Country: None (occurrence: None)
  Receive Date: 20110912
  Receipt Date: 20110203
  Transmission Date: 20111222
  Serious: Yes (Death, Hospitalization)
  Sender: FDA-Public Use
  Company Number: US-BAYER-201011227NA

PATIENT
  Age: 74 Year
  Sex: Female

DRUGS (3)
  1. COPAXONE [Concomitant]
  2. BETASERON [Suspect]
     Indication: RELAPSING-REMITTING MULTIPLE SCLEROSIS
     Dosage: UNK
     Route: 058
     Dates: start: 19940207, end: 20080810
  3. BETASERON [Suspect]
     Indication: SECONDARY PROGRESSIVE MULTIPLE SCLEROSIS

REACTIONS (4)
  - FALL [None]
  - UPPER LIMB FRACTURE [None]
  - MULTIPLE SCLEROSIS [None]
  - PULMONARY EMBOLISM [None]
